FAERS Safety Report 4377254-3 (Version None)
Quarter: 2004Q2

REPORT INFORMATION
  Report Type: 
  Country: None (occurrence: None)
  Receive Date: 20040609
  Receipt Date: 20040310
  Transmission Date: 20050107
  Serious: No
  Sender: FDA-Public Use
  Company Number: 2004203429US

PATIENT
  Age: 48 Year
  Sex: Female

DRUGS (5)
  1. BEXTRA [Suspect]
     Indication: BACK PAIN
     Dosage: 10 MG, QD, UNK
     Dates: start: 20040305, end: 20040308
  2. ZYRTEC [Concomitant]
  3. MULTIVITAMIN [Concomitant]
  4. UNISOM [Concomitant]
  5. TYLENOL [Concomitant]

REACTIONS (1)
  - PETECHIAE [None]
